FAERS Safety Report 7268609-8 (Version None)
Quarter: 2011Q1

REPORT INFORMATION
  Report Type: 
  Country: None (occurrence: None)
  Receive Date: 20110124
  Receipt Date: 20110113
  Transmission Date: 20110831
  Serious: Yes (Other)
  Sender: FDA-Public Use
  Company Number: JPI-P-013492

PATIENT
  Age: 71 Year
  Sex: Female
  Weight: 72.1219 kg

DRUGS (7)
  1. XYREM [Suspect]
     Indication: FIBROMYALGIA
     Dosage: 3 GM (1.5 GM, 2 IN 1 D), ORAL, 4.5 GM (2.25 GM, 2 IN 1 D), ORAL, 9 GM (4.5 GM, 2 IN 1 D), ORAL
     Route: 048
     Dates: start: 20081104
  2. XYREM [Suspect]
     Indication: INSOMNIA
     Dosage: 3 GM (1.5 GM, 2 IN 1 D), ORAL, 4.5 GM (2.25 GM, 2 IN 1 D), ORAL, 9 GM (4.5 GM, 2 IN 1 D), ORAL
     Route: 048
     Dates: start: 20081104
  3. XYREM [Suspect]
     Indication: FIBROMYALGIA
     Dosage: 3 GM (1.5 GM, 2 IN 1 D), ORAL, 4.5 GM (2.25 GM, 2 IN 1 D), ORAL, 9 GM (4.5 GM, 2 IN 1 D), ORAL
     Route: 048
     Dates: start: 20090114
  4. XYREM [Suspect]
     Indication: INSOMNIA
     Dosage: 3 GM (1.5 GM, 2 IN 1 D), ORAL, 4.5 GM (2.25 GM, 2 IN 1 D), ORAL, 9 GM (4.5 GM, 2 IN 1 D), ORAL
     Route: 048
     Dates: start: 20090114
  5. XYREM [Suspect]
     Indication: FIBROMYALGIA
     Dosage: 3 GM (1.5 GM, 2 IN 1 D), ORAL, 4.5 GM (2.25 GM, 2 IN 1 D), ORAL, 9 GM (4.5 GM, 2 IN 1 D), ORAL
     Route: 048
     Dates: start: 20080101
  6. XYREM [Suspect]
     Indication: INSOMNIA
     Dosage: 3 GM (1.5 GM, 2 IN 1 D), ORAL, 4.5 GM (2.25 GM, 2 IN 1 D), ORAL, 9 GM (4.5 GM, 2 IN 1 D), ORAL
     Route: 048
     Dates: start: 20080101
  7. MULTIPLE UNSPECIFIED MEDICATIONS [Concomitant]

REACTIONS (22)
  - FALL [None]
  - CARDIAC MURMUR [None]
  - HEAD INJURY [None]
  - VISION BLURRED [None]
  - POOR QUALITY SLEEP [None]
  - LOSS OF CONSCIOUSNESS [None]
  - IMPATIENCE [None]
  - HYPERHIDROSIS [None]
  - DRY MOUTH [None]
  - WEIGHT INCREASED [None]
  - FLUID RETENTION [None]
  - DIZZINESS [None]
  - SOMNOLENCE [None]
  - JOINT INJURY [None]
  - TOOTH FRACTURE [None]
  - SUDDEN ONSET OF SLEEP [None]
  - BLOOD PRESSURE INCREASED [None]
  - NEUROPATHY PERIPHERAL [None]
  - ALOPECIA [None]
  - ANXIETY [None]
  - ONYCHOMADESIS [None]
  - HEART RATE INCREASED [None]
